FAERS Safety Report 8611931-0 (Version None)
Quarter: 2012Q3

REPORT INFORMATION
  Report Type: 
  Country: None (occurrence: None)
  Receive Date: 20120822
  Receipt Date: 20120816
  Transmission Date: 20120928
  Serious: Yes (Other)
  Sender: FDA-Public Use
  Company Number: CN-ROCHE-1104306

PATIENT
  Sex: Female
  Weight: 69 kg

DRUGS (3)
  1. CYTOSAR-U [Suspect]
     Indication: CHEMOTHERAPY
     Route: 041
     Dates: start: 20110115, end: 20110116
  2. MABTHERA [Suspect]
     Indication: CHEMOTHERAPY
     Route: 041
     Dates: start: 20110114, end: 20110114
  3. METHOTREXATE [Suspect]
     Indication: CHEMOTHERAPY
     Route: 041
     Dates: start: 20110114, end: 20110114

REACTIONS (2)
  - BONE MARROW FAILURE [None]
  - HEPATIC FUNCTION ABNORMAL [None]
